FAERS Safety Report 8996721 (Version 1)
Quarter: 2012Q4

REPORT INFORMATION
  Report Type: Spontaneous
  Country: US (occurrence: None)
  Receive Date: 20121228
  Receipt Date: 20121228
  Transmission Date: 20130627
  Serious: Yes (Other)
  Sender: FDA-Public Use
  Company Number: None

PATIENT
  Age: 72 Year
  Sex: Female
  Weight: 63.05 kg

DRUGS (1)
  1. BOTOX [Suspect]
     Indication: MIGRAINE
     Dosage: 100 units
     Dates: start: 20120906

REACTIONS (5)
  - Posture abnormal [None]
  - Paralysis [None]
  - Muscular weakness [None]
  - Headache [None]
  - Activities of daily living impaired [None]
